FAERS Safety Report 5501596-9 (Version None)
Quarter: 2007Q4

REPORT INFORMATION
  Report Type: 
  Country: None (occurrence: None)
  Receive Date: 20071030
  Receipt Date: 20071016
  Transmission Date: 20080405
  Serious: Yes (Hospitalization)
  Sender: FDA-Public Use
  Company Number: US-ELI_LILLY_AND_COMPANY-US200710004158

PATIENT
  Sex: Female

DRUGS (2)
  1. FORTEO [Suspect]
     Indication: OSTEOPOROSIS
     Dates: start: 20060301
  2. FORTEO [Suspect]
     Dosage: UNK, UNK
     Dates: start: 20060901

REACTIONS (3)
  - ANAEMIA [None]
  - MALAISE [None]
  - PULMONARY FIBROSIS [None]
